FAERS Safety Report 5801703-4 (Version None)
Quarter: 2008Q3

REPORT INFORMATION
  Report Type: 
  Country: None (occurrence: None)
  Receive Date: 20080707
  Receipt Date: 20080627
  Transmission Date: 20090109
  Serious: Yes (Hospitalization)
  Sender: FDA-Public Use
  Company Number: B0527086A

PATIENT
  Age: 6 Year
  Sex: Female

DRUGS (3)
  1. RETROVIR [Suspect]
     Indication: ANTIVIRAL PROPHYLAXIS
     Dosage: .6ML FOUR TIMES PER DAY
     Route: 048
     Dates: start: 20010816, end: 20010927
  2. RETROVIR [Suspect]
     Dates: start: 20010621, end: 20010816
  3. LEDERFOLINE [Concomitant]
     Indication: DRUG USE FOR UNKNOWN INDICATION
     Route: 065

REACTIONS (7)
  - BONE MARROW FAILURE [None]
  - DRUG EXPOSURE DURING PREGNANCY [None]
  - EPISTAXIS [None]
  - HAEMORRHAGIC DISORDER [None]
  - PANCYTOPENIA [None]
  - PYREXIA [None]
  - RETICULOCYTOSIS [None]
